FAERS Safety Report 8985864 (Version 2)
Quarter: 2013Q2

REPORT INFORMATION
  Report Type: Spontaneous
  Country: US (occurrence: US)
  Receive Date: 20121226
  Receipt Date: 20130513
  Transmission Date: 20140414
  Serious: Yes (Other)
  Sender: FDA-Public Use
  Company Number: US-PFIZER INC-2012325142

PATIENT
  Sex: Male

DRUGS (4)
  1. LYRICA [Suspect]
     Indication: FIBROMYALGIA
     Dosage: UNK
  2. LYRICA [Suspect]
     Dosage: 1200 MG, UNK
  3. LYRICA [Suspect]
     Dosage: 150 MG, 4X/DAY
     Route: 048
     Dates: start: 201112
  4. LYRICA [Suspect]
     Dosage: 150 MG, 2X/DAY
     Route: 048

REACTIONS (7)
  - Drug dependence [Unknown]
  - Drug abuse [Unknown]
  - Abnormal behaviour [Unknown]
  - Agitation [Unknown]
  - Erythema [Unknown]
  - Tremor [Not Recovered/Not Resolved]
  - Anxiety [Not Recovered/Not Resolved]
